FAERS Safety Report 8834575 (Version 1)
Quarter: 2012Q4

REPORT INFORMATION
  Report Type: 
  Country: IT (occurrence: IT)
  Receive Date: 20121010
  Receipt Date: 20121010
  Transmission Date: 20130627
  Serious: Yes (Hospitalization)
  Sender: FDA-Public Use
  Company Number: IT-ASTRAZENECA-2012SE75780

PATIENT
  Age: 42 Year
  Sex: Female

DRUGS (2)
  1. FASLODEX [Suspect]
     Dosage: 500 mg
     Route: 030
  2. CHEMOTHERAPEUTIC DRUGS [Concomitant]

REACTIONS (1)
  - Hypercalcaemia of malignancy [Unknown]
